FAERS Safety Report 13342585 (Version 2)
Quarter: 2017Q1

REPORT INFORMATION
  Report Type: Spontaneous
  Country: US (occurrence: US)
  Receive Date: 20170316
  Receipt Date: 20170317
  Transmission Date: 20170428
  Serious: No
  Sender: FDA-Public Use
  Company Number: US-BAYER-2017-045574

PATIENT
  Age: 14 Month
  Sex: Female
  Weight: 11 kg

DRUGS (2)
  1. ZYRTEC [Concomitant]
     Active Substance: CETIRIZINE HYDROCHLORIDE
  2. CLARITIN [Suspect]
     Active Substance: LORATADINE
     Dosage: 1 DF, ONCE
     Route: 048
     Dates: start: 20170308, end: 20170308

REACTIONS (2)
  - Product use issue [None]
  - Accidental exposure to product by child [None]

NARRATIVE: CASE EVENT DATE: 20170308
